FAERS Safety Report 6806042-0 (Version None)
Quarter: 2010Q2

REPORT INFORMATION
  Report Type: 
  Country: None (occurrence: None)
  Receive Date: 20100629
  Receipt Date: 20080201
  Transmission Date: 20101027
  Serious: No
  Sender: FDA-Public Use
  Company Number: US-PFIZER INC-2007095737

PATIENT
  Sex: Female
  Weight: 50.909 kg

DRUGS (5)
  1. XANAX [Suspect]
     Indication: PANIC DISORDER
     Route: 048
     Dates: start: 20050301
  2. XANAX [Suspect]
     Indication: ANXIETY
  3. ZANTAC [Concomitant]
  4. NASACORT [Concomitant]
  5. ALL OTHER THERAPEUTIC PRODUCTS [Concomitant]

REACTIONS (1)
  - DRUG INEFFECTIVE [None]
